FAERS Safety Report 8780607 (Version 1)
Quarter: 2012Q4

REPORT INFORMATION
  Report Type: 
  Country: US (occurrence: US)
  Receive Date: 20120913
  Receipt Date: 20120913
  Transmission Date: 20130627
  Serious: Yes (Other)
  Sender: FDA-Public Use
  Company Number: PHEH2012US017414

PATIENT
  Sex: Male

DRUGS (2)
  1. TRILEPTAL [Suspect]
     Dosage: UNK UKN, UNK
  2. LAMICTAL [Concomitant]
     Dosage: UNK UKN, UNK

REACTIONS (5)
  - Haemangioma [Unknown]
  - Neoplasm [Unknown]
  - Angiopathy [Unknown]
  - Tumour compression [Unknown]
  - Convulsion [Unknown]
